FAERS Safety Report 11285482 (Version 5)
Quarter: 2015Q3

REPORT INFORMATION
  Report Type: Spontaneous
  Country: US (occurrence: US)
  Receive Date: 20150720
  Receipt Date: 20150908
  Transmission Date: 20151125
  Serious: Yes (Other)
  Sender: FDA-Public Use
  Company Number: CHPA2015US008516

PATIENT
  Age: 54 Year
  Sex: Female

DRUGS (2)
  1. VOLTAREN [Suspect]
     Active Substance: DICLOFENAC SODIUM
     Indication: MUSCULOSKELETAL PAIN
     Dosage: UNK, ONCE/SINGLE
     Route: 061
     Dates: start: 2014, end: 2014
  2. METHADONE [Suspect]
     Active Substance: METHADONE HYDROCHLORIDE
     Indication: PAIN
     Route: 065

REACTIONS (11)
  - Malaise [Not Recovered/Not Resolved]
  - Eye contusion [Unknown]
  - Drug administered at inappropriate site [Unknown]
  - Facial bones fracture [Unknown]
  - Confusional state [Unknown]
  - Fall [Unknown]
  - Ankle fracture [Unknown]
  - Administration site scab [Not Recovered/Not Resolved]
  - Administration site scar [Not Recovered/Not Resolved]
  - Application site pain [Recovered/Resolved]
  - Product use issue [Unknown]

NARRATIVE: CASE EVENT DATE: 2014
